FAERS Safety Report 6148625-X (Version None)
Quarter: 2009Q2

REPORT INFORMATION
  Report Type: 
  Country: None (occurrence: None)
  Receive Date: 20090408
  Receipt Date: 20090330
  Transmission Date: 20091009
  Serious: Yes (Hospitalization)
  Sender: FDA-Public Use
  Company Number: JP-WATSON-2009-02106

PATIENT
  Age: 59 Year
  Sex: Female

DRUGS (1)
  1. SULFASALAZINE [Suspect]
     Indication: COLITIS ULCERATIVE
     Dosage: UNK

REACTIONS (3)
  - ANTINEUTROPHIL CYTOPLASMIC ANTIBODY INCREASED [None]
  - GLOMERULONEPHRITIS [None]
  - RENAL TUBULAR NECROSIS [None]
